FAERS Safety Report 12563439 (Version 2)
Quarter: 2019Q4

REPORT INFORMATION
  Report Type: Report from Study
  Country: None (occurrence: AR)
  Receive Date: 20160715
  Receipt Date: 20191109
  Transmission Date: 20200122
  Serious: Yes (Other)
  Sender: FDA-Public Use
  Company Number: AR-ABBVIE-16K-007-1674822-00

PATIENT
  Age: 66 Year
  Sex: Male

DRUGS (2)
  1. HUMIRA [Suspect]
     Active Substance: ADALIMUMAB
     Indication: PSORIATIC ARTHROPATHY
     Route: 058
  2. HUMIRA [Suspect]
     Active Substance: ADALIMUMAB
     Indication: PSORIATIC ARTHROPATHY
     Route: 058
     Dates: start: 20130822

REACTIONS (3)
  - Renal failure [Not Recovered/Not Resolved]
  - Renal cyst [Not Recovered/Not Resolved]
  - Hypertension [Recovering/Resolving]

NARRATIVE: CASE EVENT DATE: 201606
